FAERS Safety Report 21882190 (Version 2)
Quarter: 2023Q1

REPORT INFORMATION
  Report Type: Report from Study
  Country: US (occurrence: US)
  Receive Date: 20230119
  Receipt Date: 20230119
  Transmission Date: 20230418
  Serious: No
  Sender: FDA-Public Use
  Company Number: US-ABBVIE-4245471

PATIENT
  Sex: Female

DRUGS (2)
  1. HUMIRA [Suspect]
     Active Substance: ADALIMUMAB
     Indication: Crohn^s disease
     Dosage: 2 PENS A MONTH
     Route: 058
     Dates: end: 20221205
  2. HUMIRA [Suspect]
     Active Substance: ADALIMUMAB
     Dosage: FIRST ADMIN DATE DEC 2022?DOSE INCREASED?4 PENS A MONTH
     Route: 058

REACTIONS (2)
  - Drug level decreased [Unknown]
  - Fistula [Unknown]
